FAERS Safety Report 8766516 (Version 1)
Quarter: 2012Q4

REPORT INFORMATION
  Report Type: 
  Country: JP (occurrence: JP)
  Receive Date: 20120905
  Receipt Date: 20120905
  Transmission Date: 20130627
  Serious: Yes (Other)
  Sender: FDA-Public Use
  Company Number: JP-ROCHE-1110537

PATIENT

DRUGS (3)
  1. ROFERON-A [Suspect]
     Indication: RENAL CELL CARCINOMA
     Dosage: 2 week treatment
     Route: 065
  2. ROFERON-A [Suspect]
     Dosage: 28 day cycle
     Route: 030
  3. SORAFENIB [Suspect]
     Indication: RENAL CELL CARCINOMA
     Dosage: 28 day cycle
     Route: 065

REACTIONS (28)
  - Palmar-plantar erythrodysaesthesia syndrome [Unknown]
  - Fatigue [Unknown]
  - Decreased appetite [Unknown]
  - Aspartate aminotransferase increased [Unknown]
  - Alanine aminotransferase increased [Unknown]
  - Depression [Unknown]
  - Hyponatraemia [Unknown]
  - Abdominal pain [Unknown]
  - Lipase increased [Unknown]
  - Haemoglobin increased [Unknown]
  - Lymphopenia [Unknown]
  - Neutrophil count increased [Unknown]
  - Hypophosphataemia [Unknown]
  - White blood cell count increased [Unknown]
  - Platelet count increased [Unknown]
  - Hypertension [Unknown]
  - Pyrexia [Unknown]
  - Weight decreased [Unknown]
  - Constipation [Unknown]
  - Diarrhoea [Unknown]
  - Nausea [Unknown]
  - Lower gastrointestinal haemorrhage [Unknown]
  - Blood alkaline phosphatase increased [Unknown]
  - Hyperbilirubinaemia [Unknown]
  - Gamma-glutamyltransferase increased [Unknown]
  - Psychotic disorder [Unknown]
  - Somnolence [Unknown]
  - Syncope [Unknown]
